FAERS Safety Report 10120281 (Version 1)
Quarter: 2014Q2

REPORT INFORMATION
  Report Type: Spontaneous
  Country: IT (occurrence: IT)
  Receive Date: 20140425
  Receipt Date: 20140425
  Transmission Date: 20141212
  Serious: Yes (Hospitalization, Other)
  Sender: FDA-Public Use
  Company Number: IT-GILEAD-2014-0100724

PATIENT
  Age: 82 Year
  Sex: Male
  Weight: 75 kg

DRUGS (7)
  1. RANOLAZINE [Suspect]
     Indication: ANGINA PECTORIS
     Dosage: 750 MG, BID
     Route: 065
     Dates: start: 2010
  2. VENITRIN [Concomitant]
     Dosage: 10 MG, UNK
     Dates: start: 2002
  3. VENITRIN [Concomitant]
     Dosage: 5 MG, UNK
     Dates: start: 201403
  4. CORDARONE [Concomitant]
     Indication: ARRHYTHMIA
     Dosage: UNK
     Dates: start: 201403, end: 2014
  5. FOLIDAR [Concomitant]
     Dosage: UNK
     Dates: start: 2012
  6. IRON SULFATE [Concomitant]
     Dosage: UNK
     Dates: start: 2012
  7. OMEPRAZOLE [Concomitant]

REACTIONS (2)
  - Pneumonia [Recovering/Resolving]
  - Fatigue [Recovering/Resolving]
